FAERS Safety Report 14340910 (Version 1)
Quarter: 2018Q1

REPORT INFORMATION
  Report Type: Spontaneous
  Country: FR (occurrence: FR)
  Receive Date: 20180102
  Receipt Date: 20180102
  Transmission Date: 20180509
  Serious: Yes (Hospitalization)
  Sender: FDA-Public Use
  Company Number: FR-CONCORDIA PHARMACEUTICALS INC.-GSH201712-006724

PATIENT
  Age: 30 Year
  Sex: Female

DRUGS (3)
  1. PLAQUENIL [Suspect]
     Active Substance: HYDROXYCHLOROQUINE SULFATE
     Indication: CHRONIC CUTANEOUS LUPUS ERYTHEMATOSUS
     Route: 048
     Dates: start: 20171023, end: 20171028
  2. LUDEAL [Concomitant]
     Active Substance: ETHINYL ESTRADIOL\LEVONORGESTREL
  3. IBUPROFENE [Concomitant]
     Active Substance: IBUPROFEN
     Dates: start: 20171026, end: 20171026

REACTIONS (2)
  - Rash maculo-papular [Recovering/Resolving]
  - Pruritus [Recovering/Resolving]

NARRATIVE: CASE EVENT DATE: 20171026
